FAERS Safety Report 7584008-3 (Version None)
Quarter: 2011Q2

REPORT INFORMATION
  Report Type: 
  Country: None (occurrence: None)
  Receive Date: 20110628
  Receipt Date: 20110628
  Transmission Date: 20111010
  Serious: Yes (Hospitalization)
  Sender: FDA-Public Use
  Company Number: None

PATIENT
  Sex: Female
  Weight: 58.9676 kg

DRUGS (2)
  1. NITROFURANTOIN (MONOHYDRATE/MACROCRYSTALS) [Suspect]
     Indication: CYSTITIS
     Dosage: 14 OF 100 MG 1, TWICE DAILY BY MOUTH
     Route: 048
     Dates: start: 20110409
  2. NITROFURANTOIN (MONOHYDRATE/MACROCRYSTALS) [Suspect]
     Indication: CYSTITIS
     Dosage: 14 OF 100 MG 1, TWICE DAILY BY MOUTH
     Route: 048
     Dates: start: 20110404

REACTIONS (7)
  - PAIN [None]
  - PYREXIA [None]
  - HEADACHE [None]
  - CHEST PAIN [None]
  - CHILLS [None]
  - ABDOMINAL PAIN UPPER [None]
  - INFLUENZA [None]
